FAERS Safety Report 14433586 (Version 1)
Quarter: 2018Q1

REPORT INFORMATION
  Report Type: Spontaneous
  Country: PT (occurrence: PT)
  Receive Date: 20180124
  Receipt Date: 20180124
  Transmission Date: 20180509
  Serious: Yes (Hospitalization, Other)
  Sender: FDA-Public Use
  Company Number: PT-GLAXOSMITHKLINE-PT2018009118

PATIENT
  Age: 15 Year
  Sex: Male

DRUGS (12)
  1. LAMOTRIGINE. [Suspect]
     Active Substance: LAMOTRIGINE
     Indication: ANXIETY
     Dosage: OFF LABEL USE
     Route: 065
  2. CLONAZEPAM. [Suspect]
     Active Substance: CLONAZEPAM
     Indication: ANXIETY
     Dosage: UNK
     Route: 065
  3. PIMOZIDE. [Suspect]
     Active Substance: PIMOZIDE
     Indication: ANXIETY
     Dosage: UNK
     Route: 065
  4. PIMOZIDE. [Suspect]
     Active Substance: PIMOZIDE
     Indication: INTENTIONAL SELF-INJURY
  5. FLUVOXAMINE [Suspect]
     Active Substance: FLUVOXAMINE
     Indication: TIC
  6. CLONAZEPAM. [Suspect]
     Active Substance: CLONAZEPAM
     Indication: TIC
  7. FLUVOXAMINE [Suspect]
     Active Substance: FLUVOXAMINE
     Indication: INTENTIONAL SELF-INJURY
  8. CLONAZEPAM. [Suspect]
     Active Substance: CLONAZEPAM
     Indication: INTENTIONAL SELF-INJURY
  9. LAMOTRIGINE. [Suspect]
     Active Substance: LAMOTRIGINE
     Indication: INTENTIONAL SELF-INJURY
  10. FLUVOXAMINE [Suspect]
     Active Substance: FLUVOXAMINE
     Indication: ANXIETY
     Dosage: UNK
     Route: 065
  11. LAMOTRIGINE. [Suspect]
     Active Substance: LAMOTRIGINE
     Indication: TIC
  12. PIMOZIDE. [Suspect]
     Active Substance: PIMOZIDE
     Indication: TIC

REACTIONS (3)
  - Off label use [Unknown]
  - Product use in unapproved indication [Unknown]
  - Neuroleptic malignant syndrome [Unknown]
